FAERS Safety Report 5075873-2 (Version None)
Quarter: 2006Q3

REPORT INFORMATION
  Report Type: 
  Country: None (occurrence: None)
  Receive Date: 20060803
  Receipt Date: 20060803
  Transmission Date: 20061208
  Serious: Yes (Hospitalization)
  Sender: FDA-Public Use
  Company Number: None

PATIENT
  Sex: Male
  Weight: 105 kg

DRUGS (2)
  1. MAXIPIME [Suspect]
     Indication: WOUND ABSCESS
     Dosage: 2G Q12 HR  IV
     Route: 042
     Dates: start: 20060502, end: 20060508
  2. MAXIPIME [Suspect]

REACTIONS (4)
  - DEHYDRATION [None]
  - DIARRHOEA [None]
  - RASH [None]
  - URTICARIA [None]
